FAERS Safety Report 8217818-X (Version None)
Quarter: 2012Q1

REPORT INFORMATION
  Report Type: 
  Country: None (occurrence: None)
  Receive Date: 20120314
  Receipt Date: 20120308
  Transmission Date: 20120608
  Serious: Yes (Life-Threatening, Hospitalization, Other)
  Sender: FDA-Public Use
  Company Number: GER/UKI/12/0023341

PATIENT
  Age: 78 Year
  Sex: Female

DRUGS (8)
  1. FLUDROCORTISONE ACETATE [Concomitant]
  2. ATENOLOL [Concomitant]
  3. WARFARIN SODIUM [Suspect]
     Indication: PRODUCT USED FOR UNKNOWN INDICATION
  4. ENALAPRIL MALEATE [Concomitant]
  5. RIVASTIGMINE TARTRATE [Suspect]
     Indication: PRODUCT USED FOR UNKNOWN INDICATION
     Dosage: 1.5 MG, 2 IN 12 HR, ORAL
     Route: 048
     Dates: start: 20111205
  6. AMLODIPINE [Concomitant]
  7. ATORVASTATIN [Concomitant]
  8. HYDROCORTONE [Concomitant]

REACTIONS (3)
  - DRUG INTERACTION [None]
  - INTERNATIONAL NORMALISED RATIO INCREASED [None]
  - ABDOMINAL WALL HAEMORRHAGE [None]
